FAERS Safety Report 7727757-6 (Version None)
Quarter: 2011Q3

REPORT INFORMATION
  Report Type: 
  Country: None (occurrence: None)
  Receive Date: 20110902
  Receipt Date: 20110824
  Transmission Date: 20111222
  Serious: Yes (Hospitalization, Other)
  Sender: FDA-Public Use
  Company Number: US-RB-031797-11

PATIENT
  Age: 59 Year
  Sex: Male

DRUGS (2)
  1. SUBUTEX [Suspect]
     Indication: DRUG DEPENDENCE
     Dosage: STOPPED 4-5 TIMES IN 2011; 8 MG DAILY TAPERED TO 1 MG DAILY AT PRESENT TIME
     Route: 060
     Dates: start: 20090101
  2. SUBOXONE [Suspect]
     Indication: DRUG DEPENDENCE
     Route: 060
     Dates: start: 20090101, end: 20090101

REACTIONS (3)
  - MENTAL DISORDER [None]
  - DRUG WITHDRAWAL SYNDROME [None]
  - UNDERDOSE [None]
